FAERS Safety Report 5209357-5 (Version None)
Quarter: 2006Q4

REPORT INFORMATION
  Report Type: 
  Country: None (occurrence: None)
  Receive Date: 20061101
  Receipt Date: 20060814
  Transmission Date: 20070319
  Serious: No
  Sender: FDA-Public Use
  Company Number: SPVI-2006-00428

PATIENT
  Age: 77 Year
  Sex: Female

DRUGS (7)
  1. FOSRENOL [Suspect]
     Dosage: 500 MG BD,
     Dates: start: 20060807, end: 20060810
  2. CARVEDILOL [Concomitant]
  3. CORDARONE /00133101/ (AMIODARONE) [Concomitant]
  4. AROMASIN [Concomitant]
  5. FERROUS FUMARATE [Concomitant]
  6. CALCIT [Concomitant]
  7. OBIMIN (CALCIUM, COPPER, FERROUS FUMARATE, FOLIC ACID, IODINE, VITAMIN [Concomitant]

REACTIONS (1)
  - RASH GENERALISED [None]
